FAERS Safety Report 8511847-4 (Version None)
Quarter: 2012Q3

REPORT INFORMATION
  Report Type: 
  Country: None (occurrence: None)
  Receive Date: 20120716
  Receipt Date: 20120712
  Transmission Date: 20120928
  Serious: Yes (Death, Hospitalization)
  Sender: FDA-Public Use
  Company Number: PHHO2012HU010347

PATIENT
  Sex: Female

DRUGS (2)
  1. BISPHOSPHONATES [Concomitant]
     Dosage: UNK
     Dates: start: 20110101, end: 20111004
  2. LETROZOLE [Suspect]
     Indication: BREAST CANCER
     Dosage: 2.5 MG, QD
     Route: 048

REACTIONS (1)
  - CARDIAC FAILURE CONGESTIVE [None]
